FAERS Safety Report 23075811 (Version 2)
Quarter: 2023Q4

REPORT INFORMATION
  Report Type: Spontaneous
  Country: JP (occurrence: JP)
  Receive Date: 20231017
  Receipt Date: 20231128
  Transmission Date: 20240109
  Serious: Yes (Hospitalization)
  Sender: FDA-Public Use
  Company Number: JP-ABBVIE-5313976

PATIENT
  Age: 79 Year
  Sex: Female
  Weight: 73 kg

DRUGS (3)
  1. RINVOQ [Suspect]
     Active Substance: UPADACITINIB
     Indication: Rheumatoid arthritis
     Dosage: 15MG
     Route: 048
     Dates: start: 20220317, end: 20230624
  2. RINVOQ [Suspect]
     Active Substance: UPADACITINIB
     Indication: Rheumatoid arthritis
     Dosage: 15 MILLIGRAM
     Route: 048
     Dates: start: 20230729
  3. TOFOGLIFLOZIN [Concomitant]
     Active Substance: TOFOGLIFLOZIN
     Indication: Product used for unknown indication
     Dosage: 20 UNKNOWN, HYDRATE
     Route: 048

REACTIONS (1)
  - Herpes zoster [Recovered/Resolved]

NARRATIVE: CASE EVENT DATE: 20230624
